FAERS Safety Report 9852910 (Version 1)
Quarter: 2014Q1

REPORT INFORMATION
  Report Type: Spontaneous
  Country: JP (occurrence: JP)
  Receive Date: 20140129
  Receipt Date: 20140129
  Transmission Date: 20141002
  Serious: Yes (Hospitalization)
  Sender: FDA-Public Use
  Company Number: JP-EISAI INC-E2090-03084-SPO-JP

PATIENT
  Age: 46 Year
  Sex: Female

DRUGS (2)
  1. EXCEGRAN [Suspect]
     Indication: TRIGEMINAL NEURALGIA
     Dosage: 300 MG DAILY
     Route: 048
     Dates: start: 20130905, end: 20131107
  2. LYRICA [Concomitant]
     Indication: PRODUCT USED FOR UNKNOWN INDICATION
     Dosage: UNKNOWN
     Route: 048
     Dates: start: 20130905

REACTIONS (1)
  - Drug reaction with eosinophilia and systemic symptoms [Recovered/Resolved]
